FAERS Safety Report 18356962 (Version 1)
Quarter: 2020Q4

REPORT INFORMATION
  Report Type: Spontaneous
  Country: US (occurrence: US)
  Receive Date: 20201007
  Receipt Date: 20201007
  Transmission Date: 20210114
  Serious: Yes (Hospitalization, Other)
  Sender: FDA-Public Use
  Company Number: US-ASTRAZENECA-2020SF26498

PATIENT
  Age: 18520 Day
  Sex: Male
  Weight: 282 kg

DRUGS (46)
  1. DULCOLAX NOS [Concomitant]
     Active Substance: BISACODYL OR DOCUSATE SODIUM
     Indication: CONSTIPATION
     Dates: start: 20181003
  2. SYNTHROID [Concomitant]
     Active Substance: LEVOTHYROXINE SODIUM
     Dates: start: 20181003
  3. NOVOLOG [Concomitant]
     Active Substance: INSULIN ASPART
  4. METFORMIN [Concomitant]
     Active Substance: METFORMIN HYDROCHLORIDE
     Dates: start: 20100911
  5. SULFAMETHOXAZOLE [Concomitant]
     Active Substance: SULFAMETHOXAZOLE
     Dates: start: 20110319
  6. TRESIBA [Concomitant]
     Active Substance: INSULIN DEGLUDEC
     Dates: start: 20170823
  7. FOLIC ACID. [Concomitant]
     Active Substance: FOLIC ACID
  8. FARXIGA [Suspect]
     Active Substance: DAPAGLIFLOZIN PROPANEDIOL
     Indication: WEIGHT DECREASED
     Route: 048
     Dates: start: 20180219
  9. ULTRAM [Concomitant]
     Active Substance: TRAMADOL HYDROCHLORIDE
     Indication: PAIN
     Dates: start: 20181003
  10. LANTUS [Concomitant]
     Active Substance: INSULIN GLARGINE
     Dates: start: 20130801
  11. ASPIRIN. [Concomitant]
     Active Substance: ASPIRIN
  12. BENADRYL [Concomitant]
     Active Substance: DIPHENHYDRAMINE HYDROCHLORIDE
  13. HUMALOG [Concomitant]
     Active Substance: INSULIN LISPRO
     Dates: start: 20181003
  14. CLINDAMYCIN. [Concomitant]
     Active Substance: CLINDAMYCIN
     Dates: start: 20110411
  15. VICTOZA [Concomitant]
     Active Substance: LIRAGLUTIDE
     Dates: start: 20110411
  16. FARXIGA [Suspect]
     Active Substance: DAPAGLIFLOZIN PROPANEDIOL
     Indication: WEIGHT DECREASED
     Route: 048
     Dates: start: 20180219, end: 20181015
  17. FARXIGA [Suspect]
     Active Substance: DAPAGLIFLOZIN PROPANEDIOL
     Indication: BLOOD PRESSURE DECREASED
     Route: 048
     Dates: start: 20180219, end: 20181015
  18. TYLENOL [Concomitant]
     Active Substance: ACETAMINOPHEN
     Indication: PAIN
     Dates: start: 20181003
  19. NORCO [Concomitant]
     Active Substance: ACETAMINOPHEN\HYDROCODONE BITARTRATE
     Indication: PAIN
     Dates: start: 20100528
  20. GLUCAGON. [Concomitant]
     Active Substance: GLUCAGON
     Dates: start: 20181003
  21. HYDROCODONE [Concomitant]
     Active Substance: HYDROCODONE
     Dates: start: 20110319
  22. MUPIROCIN. [Concomitant]
     Active Substance: MUPIROCIN
     Dates: start: 20110411
  23. INVOKANA [Concomitant]
     Active Substance: CANAGLIFLOZIN
     Dates: start: 20131224
  24. SUBLIMAZE [Concomitant]
     Active Substance: FENTANYL CITRATE
  25. DECADRON [Concomitant]
     Active Substance: DEXAMETHASONE
  26. PEPCID [Concomitant]
     Active Substance: FAMOTIDINE
     Dates: start: 20181003
  27. COLCRYS [Concomitant]
     Active Substance: COLCHICINE
     Dates: start: 20141220
  28. KETOROLAC [Concomitant]
     Active Substance: KETOROLAC TROMETHAMINE
  29. REGLAN [Concomitant]
     Active Substance: METOCLOPRAMIDE HYDROCHLORIDE
  30. MORPHINE [Concomitant]
     Active Substance: MORPHINE
  31. CIPROFLOXACIN. [Concomitant]
     Active Substance: CIPROFLOXACIN
     Dates: start: 20131224
  32. OZEMPIC [Concomitant]
     Active Substance: SEMAGLUTIDE
  33. ZOSYN [Concomitant]
     Active Substance: PIPERACILLIN SODIUM\TAZOBACTAM SODIUM
  34. BYDUREON [Concomitant]
     Active Substance: EXENATIDE
     Dates: start: 20140719
  35. DIPRIVAN [Concomitant]
     Active Substance: PROPOFOL
  36. DEXTROSE. [Concomitant]
     Active Substance: DEXTROSE
  37. FARXIGA [Suspect]
     Active Substance: DAPAGLIFLOZIN PROPANEDIOL
     Indication: TYPE 2 DIABETES MELLITUS
     Route: 048
     Dates: start: 20180219, end: 20181015
  38. FARXIGA [Suspect]
     Active Substance: DAPAGLIFLOZIN PROPANEDIOL
     Indication: TYPE 2 DIABETES MELLITUS
     Route: 048
     Dates: start: 20180219
  39. FARXIGA [Suspect]
     Active Substance: DAPAGLIFLOZIN PROPANEDIOL
     Indication: BLOOD PRESSURE DECREASED
     Route: 048
     Dates: start: 20180219
  40. PHENERGAN [Concomitant]
     Active Substance: PROMETHAZINE HYDROCHLORIDE
     Indication: NAUSEA
     Dates: start: 20181003
  41. ZOFRAN [Concomitant]
     Active Substance: ONDANSETRON HYDROCHLORIDE
     Indication: NAUSEA
     Dates: start: 20181003
  42. CEFAZOLIN [Concomitant]
     Active Substance: CEFAZOLIN
  43. BACITRACIN. [Concomitant]
     Active Substance: BACITRACIN
  44. LIDOCAINE. [Concomitant]
     Active Substance: LIDOCAINE
  45. ATORVASTATIN [Concomitant]
     Active Substance: ATORVASTATIN
     Dates: start: 20120404
  46. AMOXICILLIN. [Concomitant]
     Active Substance: AMOXICILLIN
     Dates: start: 20170823

REACTIONS (6)
  - Cellulitis of male external genital organ [Unknown]
  - Groin infection [Unknown]
  - Fournier^s gangrene [Recovered/Resolved]
  - Perineal cellulitis [Unknown]
  - Penile necrosis [Unknown]
  - Necrotising fasciitis [Unknown]

NARRATIVE: CASE EVENT DATE: 20180911
